FAERS Safety Report 7554875-8 (Version None)
Quarter: 2011Q2

REPORT INFORMATION
  Report Type: 
  Country: None (occurrence: None)
  Receive Date: 20110617
  Receipt Date: 20110607
  Transmission Date: 20111010
  Serious: Yes (Hospitalization)
  Sender: FDA-Public Use
  Company Number: BR-ASTRAZENECA-2010SE57411

PATIENT
  Age: 55 Year
  Sex: Male
  Weight: 88 kg

DRUGS (7)
  1. ASPIRIN [Concomitant]
     Indication: CORONARY ARTERY DISEASE
     Route: 048
     Dates: start: 20080224
  2. CLOPIDOGREL [Concomitant]
  3. CRESTOR [Suspect]
     Indication: DYSLIPIDAEMIA
     Route: 048
     Dates: start: 20020101, end: 20101101
  4. METOPROLOL SUCCINATE [Suspect]
     Indication: CORONARY ARTERY DISEASE
     Route: 048
     Dates: start: 20080224
  5. CRESTOR [Suspect]
     Route: 048
     Dates: start: 20101101
  6. ASPIRIN [Concomitant]
     Indication: PERIPHERAL VASCULAR DISORDER
     Route: 048
     Dates: start: 20080224
  7. GLIFAGE XR [Concomitant]
     Dosage: 750 MILLIGRAM

REACTIONS (6)
  - ANGIOPLASTY [None]
  - BLOOD CHOLESTEROL INCREASED [None]
  - BLOOD GLUCOSE INCREASED [None]
  - STENT PLACEMENT [None]
  - BLOOD TRIGLYCERIDES INCREASED [None]
  - CORONARY ARTERY DISEASE [None]
